FAERS Safety Report 7470276-5 (Version None)
Quarter: 2011Q2

REPORT INFORMATION
  Report Type: 
  Country: None (occurrence: None)
  Receive Date: 20110506
  Receipt Date: 20110506
  Transmission Date: 20111010
  Serious: Yes (Other)
  Sender: FDA-Public Use
  Company Number: None

PATIENT
  Sex: Female
  Weight: 58.9676 kg

DRUGS (1)
  1. LAMOTRIGINE [Suspect]
     Indication: BIPOLAR DISORDER
     Dosage: ONE TABLET ONCE PER DAY PO
     Route: 048
     Dates: start: 20110324, end: 20110505

REACTIONS (4)
  - LIP DRY [None]
  - MOUTH ULCERATION [None]
  - EYELID DISORDER [None]
  - LIP EXFOLIATION [None]
